FAERS Safety Report 10285232 (Version 2)
Quarter: 2014Q3

REPORT INFORMATION
  Report Type: Spontaneous
  Country: US (occurrence: US)
  Receive Date: 20140708
  Receipt Date: 20140924
  Transmission Date: 20150326
  Serious: Yes (Hospitalization)
  Sender: FDA-Public Use
  Company Number: US-INCYTE CORPORATION-2014IN001876

PATIENT
  Age: 69 Year
  Sex: Female
  Weight: 81.18 kg

DRUGS (18)
  1. JAKAFI [Suspect]
     Active Substance: RUXOLITINIB
     Indication: MYELOFIBROSIS
     Dosage: 20 MG, BID
     Route: 048
     Dates: start: 201311
  2. SODIUM BICARBONATE. [Concomitant]
     Active Substance: SODIUM BICARBONATE
  3. ST JOHN^S WART [Concomitant]
  4. VITAMIN C [Concomitant]
     Active Substance: ASCORBIC ACID
  5. ZINC GLUCONATE [Concomitant]
     Active Substance: ZINC GLUCONATE
  6. AMITRIPTYLINE [Concomitant]
     Active Substance: AMITRIPTYLINE
  7. ASTAXANTHIN [Concomitant]
  8. VITAMIN D3 [Concomitant]
     Active Substance: CHOLECALCIFEROL
  9. VITAMIN E                          /00110501/ [Concomitant]
  10. VITAMIN K [Concomitant]
     Active Substance: PHYTONADIONE
  11. ZINC [Concomitant]
     Active Substance: ZINC\ZINC CHLORIDE
  12. COMPAZINE [Concomitant]
     Active Substance: PROCHLORPERAZINE MALEATE
  13. FISH OIL [Concomitant]
     Active Substance: FISH OIL
  14. GLUCOSAMINE [Concomitant]
     Active Substance: GLUCOSAMINE
  15. PAROXETINE [Concomitant]
     Active Substance: PAROXETINE\PAROXETINE HYDROCHLORIDE
  16. ZINC OXIDE. [Concomitant]
     Active Substance: ZINC OXIDE
  17. LUTEIN                             /01638501/ [Concomitant]
     Active Substance: LUTEIN
  18. TRAMADOL [Concomitant]
     Active Substance: TRAMADOL

REACTIONS (4)
  - Chest pain [Recovered/Resolved]
  - Dyspnoea [Unknown]
  - Feeling abnormal [Unknown]
  - Cardiac disorder [Unknown]

NARRATIVE: CASE EVENT DATE: 20140610
